FAERS Safety Report 5695873-9 (Version None)
Quarter: 2008Q2

REPORT INFORMATION
  Report Type: 
  Country: None (occurrence: None)
  Receive Date: 20080407
  Receipt Date: 20080327
  Transmission Date: 20081010
  Serious: Yes (Hospitalization)
  Sender: FDA-Public Use
  Company Number: FR-WYE-H03435508

PATIENT
  Sex: Female

DRUGS (8)
  1. INIPOMP [Suspect]
     Dosage: 20 MG, FREQUENCY NOT SPECIFIED
     Route: 048
  2. LEVOTHYROXINE SODIUM [Concomitant]
     Dosage: DOSE FORM, FREQUENCY NOT SPECIFIED
     Route: 048
  3. ASCORBIC ACID [Concomitant]
     Dosage: DOSE FORM, FREQUENCY NOT SPECIFIED
     Route: 048
  4. TANAKAN [Concomitant]
     Dosage: DOSE FORM, FREQUENCY NOT SPECIFIED
     Route: 048
  5. VITAMIN B-12 [Concomitant]
     Dosage: DOSE FORM, FREQUENCY NOT SPECIFIED
     Route: 048
  6. SPECIAFOLDINE [Concomitant]
     Dosage: DOSE FORM, FREQUENCY NOT SPECIFIED
     Route: 048
  7. LAMICTAL [Suspect]
     Indication: EPILEPSY
     Route: 048
     Dates: start: 20070401, end: 20080128
  8. INEGY [Concomitant]
     Dosage: DOSE FORM, FREQUENCY NOT SPECIFIED
     Route: 048

REACTIONS (1)
  - BONE MARROW FAILURE [None]
